FAERS Safety Report 5887479-3 (Version None)
Quarter: 2008Q3

REPORT INFORMATION
  Report Type: 
  Country: None (occurrence: None)
  Receive Date: 20080918
  Receipt Date: 20080915
  Transmission Date: 20090109
  Serious: Yes (Other)
  Sender: FDA-Public Use
  Company Number: US-BAYER-200831997NA

PATIENT
  Age: 52 Year
  Sex: Female

DRUGS (14)
  1. AVELOX [Suspect]
     Indication: CHRONIC SINUSITIS
     Dosage: TOTAL DAILY DOSE: 400 MG  UNIT DOSE: 400 MG
     Route: 048
  2. SYNTHROID [Concomitant]
  3. NIFEDIPINE [Concomitant]
  4. WELLBUTRIN [Concomitant]
  5. MONOCYCLINE [Concomitant]
  6. ALBUTEROL [Concomitant]
  7. PULMICORT-100 [Concomitant]
  8. VALTREX [Concomitant]
  9. CYMBALTA [Concomitant]
  10. GABAPENTIN [Concomitant]
  11. REQUIP [Concomitant]
  12. ALPRAZOLAM [Concomitant]
  13. ALLEGRA [Concomitant]
  14. ESTROGEL [Concomitant]

REACTIONS (1)
  - TENDON RUPTURE [None]
